FAERS Safety Report 9912507 (Version 1)
Quarter: 2014Q1

REPORT INFORMATION
  Report Type: Report from Study
  Country: ES (occurrence: ES)
  Receive Date: 20140220
  Receipt Date: 20140220
  Transmission Date: 20141002
  Serious: Yes (Hospitalization)
  Sender: FDA-Public Use
  Company Number: ES-ROCHE-1348561

PATIENT
  Age: 67 Year
  Sex: Female

DRUGS (6)
  1. MYCOPHENOLATE MOFETIL [Suspect]
     Indication: RENAL TRANSPLANT
     Route: 048
     Dates: start: 201302
  2. PREDNISONE [Interacting]
     Indication: RENAL TRANSPLANT
     Route: 048
     Dates: start: 201302
  3. TACROLIMUS [Interacting]
     Indication: RENAL TRANSPLANT
     Route: 048
     Dates: start: 201302
  4. LEDERFOLIN [Concomitant]
     Indication: PROPHYLAXIS
     Route: 048
     Dates: start: 201302
  5. SEPTRIN [Concomitant]
     Indication: ANTIBIOTIC PROPHYLAXIS
     Route: 048
     Dates: start: 201302
  6. VALCYTE [Concomitant]
     Indication: ANTIVIRAL PROPHYLAXIS
     Route: 048
     Dates: start: 201302

REACTIONS (2)
  - Cytomegalovirus infection [Recovered/Resolved]
  - Drug interaction [Unknown]
